FAERS Safety Report 8205477-1 (Version None)
Quarter: 2012Q1

REPORT INFORMATION
  Report Type: 
  Country: None (occurrence: None)
  Receive Date: 20120313
  Receipt Date: 20120301
  Transmission Date: 20120608
  Serious: Yes (Life-Threatening, Hospitalization)
  Sender: FDA-Public Use
  Company Number: ES-BRISTOL-MYERS SQUIBB COMPANY-16442758

PATIENT
  Age: 76 Year
  Sex: Female

DRUGS (4)
  1. METFORMIN HCL [Suspect]
     Indication: TYPE 2 DIABETES MELLITUS
  2. SIMVASTATIN [Concomitant]
  3. ESCITALOPRAM [Concomitant]
  4. MIRTAZAPINE [Concomitant]

REACTIONS (6)
  - BACK PAIN [None]
  - NAUSEA [None]
  - BLADDER CANCER [None]
  - VOMITING [None]
  - LACTIC ACIDOSIS [None]
  - DIARRHOEA [None]
